FAERS Safety Report 10761398 (Version 1)
Quarter: 2015Q1

REPORT INFORMATION
  Report Type: Spontaneous
  Country: US (occurrence: None)
  Receive Date: 20150128
  Receipt Date: 20150128
  Transmission Date: 20150721
  Serious: Yes (Life-Threatening, Hospitalization)
  Sender: FDA-Public Use
  Company Number: 1417442

PATIENT
  Age: 54 Year
  Sex: Male

DRUGS (1)
  1. RITUXAN [Suspect]
     Active Substance: RITUXIMAB
     Indication: PRODUCT USED FOR UNKNOWN INDICATION
     Dosage: INTRAVENOUS, NOT OTHERWISE SPECIFIED
     Route: 042
     Dates: start: 2007, end: 20140306

REACTIONS (2)
  - Pyrexia [None]
  - Salmonellosis [None]

NARRATIVE: CASE EVENT DATE: 20140309
